FAERS Safety Report 10412716 (Version 1)
Quarter: 2014Q2

REPORT INFORMATION
  Report Type: Spontaneous
  Country: US (occurrence: None)
  Receive Date: 20140604
  Receipt Date: 20140604
  Transmission Date: 20141212
  Serious: Yes (Death)
  Sender: FDA-Public Use
  Company Number: 163-POMAL-14022242

PATIENT
  Age: 68 Year
  Sex: Male

DRUGS (16)
  1. POMALYST (POMALIDOMIDE) (CAPSULES) [Suspect]
     Indication: PLASMA CELL MYELOMA
     Dosage: 4 MG, 21 IN 21 D
     Route: 048
     Dates: start: 20140127, end: 20140221
  2. TRAMADOL [Concomitant]
  3. HYDROCODONE-ACETAMINOPHEN (REMEDEINE) [Concomitant]
  4. CHOLECALCIFEROL (COLECALCIFEROL) [Concomitant]
  5. CALCIUM CITRATE-VITAMIN D (CALCIUM CITRATE W/COLECALCIFEROL) [Concomitant]
  6. MAGNESIUM HYDROXIDE [Concomitant]
  7. DULCOLAX (BISACODYL) [Concomitant]
  8. POLYETHYLENE GLYCOL (MACROGOL) [Concomitant]
  9. BETAMETHASONE DIPROP (BETAMETHASONE DIPROPIONATE) [Concomitant]
  10. ACETAMINOPHEN (PARACETAMOL) [Concomitant]
  11. TRIAMCINOLONE [Concomitant]
  12. FERROUS SULFATE [Concomitant]
  13. CLOPIDOGREL [Concomitant]
  14. TERAZOSIN [Concomitant]
  15. PRAVASTATIN [Concomitant]
  16. OMEPRAZOLE [Concomitant]

REACTIONS (3)
  - Plasma cell myeloma [None]
  - Stomatitis [None]
  - Toothache [None]
